FAERS Safety Report 24811709 (Version 1)
Quarter: 2025Q1

REPORT INFORMATION
  Report Type: Report from Study
  Country: TW (occurrence: TW)
  Receive Date: 20250106
  Receipt Date: 20250106
  Transmission Date: 20250409
  Serious: Yes (Hospitalization)
  Sender: PFIZER
  Company Number: TW-PFIZER INC-PV202400169957

PATIENT
  Age: 70 Year
  Sex: Female
  Weight: 68.7 kg

DRUGS (39)
  1. DOXORUBICIN HYDROCHLORIDE [Suspect]
     Active Substance: DOXORUBICIN HYDROCHLORIDE
     Indication: Diffuse large B-cell lymphoma
     Route: 042
     Dates: start: 20230215
  2. VINCRISTINE SULFATE [Suspect]
     Active Substance: VINCRISTINE SULFATE
     Indication: Diffuse large B-cell lymphoma
     Route: 042
     Dates: start: 20230215
  3. INVESTIGATIONAL PRODUCT [Suspect]
     Active Substance: INVESTIGATIONAL PRODUCT
     Indication: Diffuse large B-cell lymphoma
     Dates: start: 20230215, end: 20230419
  4. INVESTIGATIONAL PRODUCT [Suspect]
     Active Substance: INVESTIGATIONAL PRODUCT
     Indication: Diffuse large B-cell lymphoma
     Route: 048
     Dates: start: 20230215, end: 20230419
  5. RITUXIMAB [Suspect]
     Active Substance: RITUXIMAB
     Indication: Diffuse large B-cell lymphoma
     Dates: start: 20230215
  6. CYCLOPHOSPHAMIDE [Suspect]
     Active Substance: CYCLOPHOSPHAMIDE
     Indication: Diffuse large B-cell lymphoma
     Dates: start: 20230215
  7. PREDNISOLONE [Suspect]
     Active Substance: PREDNISOLONE
     Indication: Diffuse large B-cell lymphoma
     Dates: start: 20230215
  8. SODIUM CHLORIDE [Concomitant]
     Active Substance: SODIUM CHLORIDE
     Dates: start: 20230511, end: 20230714
  9. DAILYCARE ACTIBEST [Concomitant]
     Dates: start: 20230713, end: 20230714
  10. ALLEGRA [Concomitant]
     Active Substance: FEXOFENADINE HYDROCHLORIDE
     Dates: start: 20230713, end: 20230714
  11. BROWN MIXTURE [GLYCYRRHIZA GLABRA EXTRACT;PAPAVER SOMNIFERUM;PIMPINELL [Concomitant]
     Dates: start: 20230713, end: 20230714
  12. RIVOTRIL [Concomitant]
     Active Substance: CLONAZEPAM
     Dates: start: 20230713, end: 20230714
  13. ACETAL [ACECLOFENAC] [Concomitant]
     Dates: start: 20230712, end: 20230716
  14. KCL [Concomitant]
     Active Substance: POTASSIUM CHLORIDE
     Dates: start: 20230511, end: 20230714
  15. GLUCOBAY [Concomitant]
     Active Substance: ACARBOSE
     Dates: start: 20230712, end: 20230714
  16. BISOPROLOL FUMARATE [Concomitant]
     Active Substance: BISOPROLOL FUMARATE
     Dates: start: 20230712, end: 20230714
  17. THROUGH [SENNOSIDE A+B] [Concomitant]
     Dates: start: 20230712, end: 20230716
  18. NORVASC [Concomitant]
     Active Substance: AMLODIPINE BESYLATE
     Dates: start: 20230712, end: 20230714
  19. TRICHLORMETHIAZIDE [Concomitant]
     Active Substance: TRICHLORMETHIAZIDE
     Dates: start: 20230712, end: 20230714
  20. XANAX [Concomitant]
     Active Substance: ALPRAZOLAM
     Dates: start: 20230712, end: 20230714
  21. ZULITOR [Concomitant]
     Dates: start: 20230712, end: 20230714
  22. ACTRAPID [Concomitant]
     Active Substance: INSULIN HUMAN
     Dates: start: 20230512, end: 20230516
  23. NEURONTIN [Concomitant]
     Active Substance: GABAPENTIN
     Dates: start: 20230513, end: 20230516
  24. KETO [KETOTIFEN] [Concomitant]
     Dates: start: 20230513, end: 20230515
  25. GASLAN [Concomitant]
     Dates: start: 20230512, end: 20230516
  26. CHLORPHENIRAMINE MALEATE [Concomitant]
     Active Substance: CHLORPHENIRAMINE MALEATE
     Dates: start: 20230511, end: 20230512
  27. ROSIS [FUROSEMIDE] [Concomitant]
     Dates: start: 20230511, end: 20230512
  28. CALGLON [Concomitant]
     Dates: start: 20230511, end: 20230511
  29. AMIYU [AMINO ACIDS NOS] [Concomitant]
     Dates: start: 20230511, end: 20230516
  30. PANTOPRAZOLE SODIUM [Concomitant]
     Active Substance: PANTOPRAZOLE SODIUM
     Dates: start: 20230511, end: 20230515
  31. TRANSAMIN [Concomitant]
     Active Substance: TRANEXAMIC ACID
     Dates: start: 20230511, end: 20230513
  32. TRAMADOL [Concomitant]
     Active Substance: TRAMADOL
     Dates: start: 20230511, end: 20230514
  33. MORPHINE [Concomitant]
     Active Substance: MORPHINE
     Dates: start: 20230511, end: 20230516
  34. VETERIN [Concomitant]
     Dates: start: 20230511, end: 20230514
  35. MANNITOL [Concomitant]
     Active Substance: MANNITOL
  36. CELEBREX [Concomitant]
     Active Substance: CELECOXIB
     Dates: start: 20230511, end: 20230511
  37. PHYTONADIONE [Concomitant]
     Active Substance: PHYTONADIONE
     Dates: start: 20230511, end: 20230513
  38. DEXTROSE [Concomitant]
     Active Substance: DEXTROSE MONOHYDRATE
     Dates: start: 20230511, end: 20230513
  39. INNO.N 0.45% SODIUM CHLORIDE [Concomitant]
     Dates: start: 20230511, end: 20230511

REACTIONS (3)
  - Febrile neutropenia [Recovered/Resolved]
  - Second primary malignancy [Recovered/Resolved]
  - Renal cell carcinoma [Recovered/Resolved]

NARRATIVE: CASE EVENT DATE: 20230419
